FAERS Safety Report 13579229 (Version 1)
Quarter: 2017Q2

REPORT INFORMATION
  Report Type: Report from Study
  Country: CO (occurrence: CO)
  Receive Date: 20170525
  Receipt Date: 20170525
  Transmission Date: 20170830
  Serious: Yes (Death, Hospitalization, Other)
  Sender: FDA-Public Use
  Company Number: CO-AMGEN-COLSL2017077806

PATIENT
  Age: 58 Year
  Sex: Male

DRUGS (1)
  1. MIMPARA [Suspect]
     Active Substance: CINACALCET HYDROCHLORIDE
     Indication: HYPERPARATHYROIDISM SECONDARY
     Dosage: 120 MG, QD
     Route: 048
     Dates: start: 20150301, end: 20170113

REACTIONS (1)
  - Fungaemia [Fatal]

NARRATIVE: CASE EVENT DATE: 20170121
